FAERS Safety Report 7991175-6 (Version None)
Quarter: 2011Q4

REPORT INFORMATION
  Report Type: 
  Country: None (occurrence: None)
  Receive Date: 20111219
  Receipt Date: 20111207
  Transmission Date: 20120403
  Serious: Yes (Hospitalization)
  Sender: FDA-Public Use
  Company Number: US-BAYER-201033472NA

PATIENT
  Age: 19 Year
  Sex: Female
  Weight: 74 kg

DRUGS (11)
  1. SKELAXIN [Concomitant]
     Dosage: 800 MG, UNK
     Dates: start: 20090604
  2. DROSPIRENONE AND ETHINYL ESTRADIOL [Suspect]
     Indication: ORAL CONTRACEPTION
     Dosage: UNK UNK, UNK
     Route: 065
     Dates: start: 20090101, end: 20090901
  3. UNCODEABLE ^UNCLASSIFIABLE^ [Concomitant]
     Indication: ANTACID THERAPY
  4. FLUCONAZOLE [Concomitant]
     Dosage: 150 MG, UNK
     Dates: start: 20090508
  5. AZITHROMYCIN [Concomitant]
     Dosage: 250 MG, UNK
     Dates: start: 20090324
  6. DROSPIRENONE AND ETHINYL ESTRADIOL [Suspect]
     Indication: PREMENSTRUAL SYNDROME
  7. UNCODEABLE ^UNCLASSIFIABLE^ [Concomitant]
     Indication: NAUSEA
  8. ANTISPASMODICS IN COMBINATION WITH PSYCHOLEPT [Concomitant]
     Dosage: UNK
     Dates: start: 20090510
  9. HYDROCODONE BITARTRATE AND ACETAMINOPHEN [Concomitant]
     Dosage: 325 MG, UNK
     Dates: start: 20090618
  10. LEVAQUIN [Concomitant]
     Dosage: 500 MG, UNK
     Dates: start: 20090510
  11. PROMETHAZINE [Concomitant]
     Dosage: 25 MG, UNK
     Dates: start: 20090510

REACTIONS (12)
  - VOMITING [None]
  - FLATULENCE [None]
  - DYSPEPSIA [None]
  - MENTAL DISORDER [None]
  - ABDOMINAL DISTENSION [None]
  - CONSTIPATION [None]
  - DIARRHOEA [None]
  - DEPRESSION [None]
  - CHOLECYSTITIS CHRONIC [None]
  - CHOLELITHIASIS [None]
  - ABDOMINAL PAIN [None]
  - ANXIETY [None]
